FAERS Safety Report 8805999 (Version 1)
Quarter: 2012Q4

REPORT INFORMATION
  Report Type: Spontaneous
  Country: JP (occurrence: None)
  Receive Date: 20120918
  Receipt Date: 20120918
  Transmission Date: 20130627
  Serious: Yes (Other)
  Sender: FDA-Public Use
  Company Number: DSA_59571_2012

PATIENT
  Sex: Female

DRUGS (3)
  1. FLUOROURACIL (FLUOROURACIL) [Suspect]
     Indication: BREAST CANCER
     Dosage: (500 mg/m2; Every three weeks Intravenous (not otherwise specified)
     Route: 042
  2. EPIRUBICIN [Suspect]
     Dosage: (100 mg/m2; Every three weeks Intravenous (not otherwise specified)
     Route: 002
  3. CYCLOPHOSPHAMIDE [Suspect]
     Dosage: (500 mg/m2; Every three weeks Intravenous (not otherwise specified)

REACTIONS (1)
  - Febrile neutropenia [None]
